FAERS Safety Report 9416482 (Version 1)
Quarter: 2013Q3

REPORT INFORMATION
  Report Type: Spontaneous
  Country: SA (occurrence: None)
  Receive Date: 20130719
  Receipt Date: 20130719
  Transmission Date: 20140515
  Serious: Yes (Hospitalization)
  Sender: FDA-Public Use
  Company Number: 2013P1011915

PATIENT
  Age: 2 Year
  Sex: Male

DRUGS (1)
  1. CLONIDINE [Suspect]
     Route: 048

REACTIONS (12)
  - Accidental exposure to product by child [None]
  - Pallor [None]
  - Somnolence [None]
  - Malaise [None]
  - Lethargy [None]
  - Peripheral coldness [None]
  - Blood pressure decreased [None]
  - Respiratory rate decreased [None]
  - Oxygen saturation decreased [None]
  - Miosis [None]
  - Hypotonia [None]
  - Atrioventricular block first degree [None]
